FAERS Safety Report 12646209 (Version 4)
Quarter: 2016Q4

REPORT INFORMATION
  Report Type: Spontaneous
  Country: HU (occurrence: HU)
  Receive Date: 20160811
  Receipt Date: 20161004
  Transmission Date: 20170207
  Serious: Yes (Hospitalization)
  Sender: FDA-Public Use
  Company Number: HU-UCBSA-2016030905

PATIENT
  Age: 76 Year
  Sex: Male

DRUGS (3)
  1. NEUPRO [Suspect]
     Active Substance: ROTIGOTINE
     Dosage: 4 MG + 8 MG, TOTAL DOSE 12 MG
     Route: 062
     Dates: start: 2016, end: 20160801
  2. OPRYMEA [Concomitant]
     Active Substance: PRAMIPEXOLE DIHYDROCHLORIDE
     Indication: PARKINSON^S DISEASE
     Dosage: 2 MG, ONCE DAILY (QD)
     Route: 048
  3. NEUPRO [Suspect]
     Active Substance: ROTIGOTINE
     Indication: PARKINSON^S DISEASE
     Dosage: UNK
     Route: 062
     Dates: start: 2010, end: 2016

REACTIONS (3)
  - Rash [Recovered/Resolved]
  - Hospitalisation [Unknown]
  - Product adhesion issue [Unknown]

NARRATIVE: CASE EVENT DATE: 2016
